FAERS Safety Report 11315015 (Version 6)
Quarter: 2016Q1

REPORT INFORMATION
  Report Type: Report from Study
  Country: CA (occurrence: CA)
  Receive Date: 20150727
  Receipt Date: 20160129
  Transmission Date: 20160525
  Serious: Yes (Death, Life-Threatening, Hospitalization, Other)
  Sender: FDA-Public Use
  Company Number: CA-GILEAD-2015-0162496

PATIENT
  Age: 64 Year
  Sex: Male
  Weight: 59.3 kg

DRUGS (2)
  1. IDELALISIB [Suspect]
     Active Substance: IDELALISIB
     Indication: NON-HODGKIN^S LYMPHOMA UNSPECIFIED HISTOLOGY INDOLENT
     Dosage: 150 MG, BID
     Route: 048
     Dates: start: 20150612, end: 20150717
  2. KEFEXIN [Concomitant]
     Active Substance: CEPHALEXIN
     Dosage: 500 MG, BID
     Route: 048

REACTIONS (11)
  - Respiratory failure [Fatal]
  - Ischaemic hepatitis [Fatal]
  - Dermatitis bullous [Not Recovered/Not Resolved]
  - Frequent bowel movements [Unknown]
  - Hypoxia [Unknown]
  - Increased tendency to bruise [Unknown]
  - Dyspnoea [Unknown]
  - Acute kidney injury [Fatal]
  - Lung disorder [Unknown]
  - Pneumonitis [Unknown]
  - Skin ulcer [Unknown]

NARRATIVE: CASE EVENT DATE: 201507
